FAERS Safety Report 8371607-4 (Version None)
Quarter: 2012Q2

REPORT INFORMATION
  Report Type: 
  Country: None (occurrence: None)
  Receive Date: 20120518
  Receipt Date: 20120514
  Transmission Date: 20120825
  Serious: Yes (Death)
  Sender: FDA-Public Use
  Company Number: JP-CELGENEUS-087-50794-12052007

PATIENT
  Sex: Female
  Weight: 53 kg

DRUGS (10)
  1. VIDAZA [Suspect]
     Dosage: 100 MILLIGRAM
     Route: 041
     Dates: start: 20120105, end: 20120111
  2. VIDAZA [Suspect]
     Dosage: 100 MILLIGRAM
     Route: 041
     Dates: start: 20120319, end: 20120325
  3. ACETAMINOPHEN [Concomitant]
     Route: 065
  4. MAGNESIUM SULFATE [Concomitant]
     Route: 065
     Dates: start: 20120105
  5. ZOLPIDEM [Concomitant]
     Route: 065
  6. LOXONIN [Concomitant]
     Route: 065
  7. LEVOFLOXACIN [Concomitant]
     Route: 065
     Dates: start: 20120105
  8. LAXOBERON [Concomitant]
     Route: 065
     Dates: start: 20120105
  9. VIDAZA [Suspect]
     Dosage: 100 MILLIGRAM
     Route: 041
     Dates: start: 20120301, end: 20120305
  10. ALOSENN [Concomitant]
     Route: 065
     Dates: start: 20120105

REACTIONS (1)
  - INTERSTITIAL LUNG DISEASE [None]
